FAERS Safety Report 4944288-7 (Version None)
Quarter: 2006Q1

REPORT INFORMATION
  Report Type: 
  Country: None (occurrence: None)
  Receive Date: 20060315
  Receipt Date: 20060307
  Transmission Date: 20060701
  Serious: Yes (Hospitalization)
  Sender: FDA-Public Use
  Company Number: JP-JPN-A200600882

PATIENT
  Age: 73 Year
  Sex: Female

DRUGS (4)
  1. PAXIL [Suspect]
     Indication: DEPRESSION
     Route: 048
     Dates: end: 20060130
  2. DORAL [Concomitant]
     Route: 048
  3. LUVOX [Concomitant]
     Route: 048
  4. LENDORMIN [Concomitant]
     Route: 048

REACTIONS (2)
  - DELIRIUM [None]
  - DEPRESSED LEVEL OF CONSCIOUSNESS [None]
